FAERS Safety Report 8942256 (Version 1)
Quarter: 2012Q4

REPORT INFORMATION
  Report Type: Spontaneous
  Country: US (occurrence: None)
  Receive Date: 20121129
  Receipt Date: 20121129
  Transmission Date: 20130627
  Serious: Yes (Hospitalization)
  Sender: FDA-Public Use
  Company Number: None

PATIENT
  Age: 69 Year
  Sex: Male
  Weight: 72.5 kg

DRUGS (1)
  1. CIPROFLOXACIN AND DEXTROSE [Suspect]
     Route: 042
     Dates: start: 20120331, end: 20120331

REACTIONS (9)
  - Pyrexia [None]
  - Hypotension [None]
  - Urosepsis [None]
  - Somnolence [None]
  - Pedal pulse decreased [None]
  - Pallor [None]
  - Oedema [None]
  - Erythema multiforme [None]
  - Infusion related reaction [None]
